FAERS Safety Report 6187763-2 (Version None)
Quarter: 2009Q2

REPORT INFORMATION
  Report Type: 
  Country: None (occurrence: None)
  Receive Date: 20090511
  Receipt Date: 20090511
  Transmission Date: 20091009
  Serious: Yes (Death)
  Sender: FDA-Public Use
  Company Number: None

PATIENT
  Age: 69 Year
  Sex: Male
  Weight: 104.3273 kg

DRUGS (1)
  1. LYRICA [Suspect]
     Indication: BURNING SENSATION
     Dates: start: 20090201

REACTIONS (10)
  - CELLULITIS [None]
  - COMPLETED SUICIDE [None]
  - DISTURBANCE IN ATTENTION [None]
  - FATIGUE [None]
  - GUN SHOT WOUND [None]
  - MENTAL STATUS CHANGES [None]
  - MOOD ALTERED [None]
  - MYALGIA [None]
  - PYREXIA [None]
  - WEIGHT INCREASED [None]
